FAERS Safety Report 24424272 (Version 1)
Quarter: 2024Q4

REPORT INFORMATION
  Report Type: Spontaneous
  Country: US (occurrence: None)
  Receive Date: 20241009
  Receipt Date: 20241009
  Transmission Date: 20250115
  Serious: No
  Sender: Public
  Company Number: None

PATIENT
  Age: 13 Year
  Sex: Male
  Weight: 58.5 kg

DRUGS (4)
  1. DUPIXENT [Suspect]
     Active Substance: DUPILUMAB
     Indication: Eczema
     Dosage: OTHER QUANTITY : 2 INJECTION(S);?OTHER FREQUENCY : ONLY ONCE;?
     Route: 058
     Dates: start: 20241003, end: 20241003
  2. Old Spice ^Scent of Cedarwood^ bodywash [Concomitant]
  3. Dove Sensitive Skin Hypoallergenic bodywash [Concomitant]
  4. Tacrolimus Ointment (0.03%) [Concomitant]

REACTIONS (6)
  - Rash [None]
  - Rash [None]
  - Pruritus [None]
  - Skin burning sensation [None]
  - Rash [None]
  - Urticaria [None]

NARRATIVE: CASE EVENT DATE: 20241007
